FAERS Safety Report 9641033 (Version 1)
Quarter: 2013Q4

REPORT INFORMATION
  Report Type: Spontaneous
  Country: US (occurrence: US)
  Receive Date: 20131023
  Receipt Date: 20131023
  Transmission Date: 20140711
  Serious: Yes (Other)
  Sender: FDA-Public Use
  Company Number: US-PFIZER INC-2013300967

PATIENT
  Sex: Female

DRUGS (3)
  1. PROTONIX [Suspect]
     Dosage: UNK
  2. PROCARDIA [Suspect]
     Dosage: UNK
  3. DETROL [Suspect]
     Dosage: UNK

REACTIONS (2)
  - Adrenal neoplasm [Unknown]
  - Vomiting [Unknown]
